FAERS Safety Report 16775718 (Version 1)
Quarter: 2019Q3

REPORT INFORMATION
  Report Type: Spontaneous
  Country: CA (occurrence: CA)
  Receive Date: 20190905
  Receipt Date: 20190905
  Transmission Date: 20191005
  Serious: Yes (Other)
  Sender: FDA-Public Use
  Company Number: CA-MYLANLABS-2019M1082906

PATIENT
  Sex: Female
  Weight: 67 kg

DRUGS (3)
  1. RYTHMOL [Suspect]
     Active Substance: PROPAFENONE HYDROCHLORIDE
     Dosage: 150 MILLIGRAM, BID
     Route: 048
  2. RYTHMOL [Suspect]
     Active Substance: PROPAFENONE HYDROCHLORIDE
     Dosage: 150 MILLIGRAM, BID
     Route: 048
  3. RYTHMOL [Suspect]
     Active Substance: PROPAFENONE HYDROCHLORIDE
     Indication: VENTRICULAR TACHYCARDIA
     Dosage: 150 MILLIGRAM, BID
     Route: 048
     Dates: start: 1989

REACTIONS (9)
  - Nephrolithiasis [Not Recovered/Not Resolved]
  - Cardiac murmur [Unknown]
  - Bladder prolapse [Unknown]
  - Tremor [Unknown]
  - Muscular weakness [Unknown]
  - Renal cyst [Not Recovered/Not Resolved]
  - Heart rate abnormal [Unknown]
  - Renal failure [Not Recovered/Not Resolved]
  - Kidney infection [Recovered/Resolved]

NARRATIVE: CASE EVENT DATE: 2018
